FAERS Safety Report 5555443-X (Version None)
Quarter: 2007Q4

REPORT INFORMATION
  Report Type: 
  Country: None (occurrence: None)
  Receive Date: 20071213
  Receipt Date: 20070818
  Transmission Date: 20080405
  Serious: No
  Sender: FDA-Public Use
  Company Number: US-AMGEN-KDL239467

PATIENT
  Sex: Female

DRUGS (2)
  1. ENBREL [Suspect]
     Indication: RHEUMATOID ARTHRITIS
     Route: 058
     Dates: start: 19991213
  2. METHOTREXATE [Concomitant]

REACTIONS (3)
  - HYPERSENSITIVITY [None]
  - PARANASAL SINUS HYPERSECRETION [None]
  - THROAT IRRITATION [None]
